FAERS Safety Report 12106172 (Version 2)
Quarter: 2016Q1

REPORT INFORMATION
  Report Type: Report from Study
  Country: CO (occurrence: CO)
  Receive Date: 20160223
  Receipt Date: 20160310
  Transmission Date: 20160526
  Serious: Yes (Other)
  Sender: FDA-Public Use
  Company Number: CO-JNJFOC-20160216027

PATIENT
  Age: 43 Year
  Sex: Male
  Weight: 85 kg

DRUGS (3)
  1. INTERFERON ALFA 2B [Concomitant]
     Active Substance: INTERFERON ALFA-2B
     Indication: HEPATITIS C
     Route: 058
     Dates: start: 20160108
  2. OLYSIO [Suspect]
     Active Substance: SIMEPREVIR
     Indication: HEPATITIS C
     Route: 048
     Dates: start: 20160108
  3. RIBAVIRIN. [Concomitant]
     Active Substance: RIBAVIRIN
     Indication: HEPATITIS C
     Route: 048
     Dates: start: 20160108

REACTIONS (3)
  - Viral load [Unknown]
  - Drug ineffective [Unknown]
  - Dehydration [Recovered/Resolved]

NARRATIVE: CASE EVENT DATE: 20160111
